FAERS Safety Report 20973733 (Version 1)
Quarter: 2022Q2

REPORT INFORMATION
  Report Type: Spontaneous
  Country: US (occurrence: US)
  Receive Date: 20220617
  Receipt Date: 20220617
  Transmission Date: 20220721
  Serious: No
  Sender: FDA-Public Use
  Company Number: US-AMGEN-USASP2022102507

PATIENT

DRUGS (5)
  1. AIMOVIG [Suspect]
     Active Substance: ERENUMAB-AOOE
     Indication: Migraine
     Dosage: UNK UNK, QMO
     Route: 065
  2. AIMOVIG [Suspect]
     Active Substance: ERENUMAB-AOOE
     Indication: Migraine prophylaxis
  3. AIMOVIG [Suspect]
     Active Substance: ERENUMAB-AOOE
     Indication: Migraine
  4. NURTEC ODT [Concomitant]
     Active Substance: RIMEGEPANT SULFATE
     Indication: Product used for unknown indication
     Route: 065
  5. BOTOX [Concomitant]
     Active Substance: ONABOTULINUMTOXINA

REACTIONS (1)
  - Therapeutic product effect incomplete [Not Recovered/Not Resolved]
